FAERS Safety Report 5009379-3 (Version None)
Quarter: 2006Q2

REPORT INFORMATION
  Report Type: 
  Country: None (occurrence: None)
  Receive Date: 20060524
  Receipt Date: 20060518
  Transmission Date: 20061013
  Serious: Yes (Death)
  Sender: FDA-Public Use
  Company Number: IT-JNJFOC-20060503831

PATIENT
  Sex: Male

DRUGS (12)
  1. LEVOXACIN [Suspect]
     Route: 042
     Dates: start: 20060302, end: 20060316
  2. CLARITHROMYCIN [Suspect]
     Route: 042
     Dates: start: 20060227, end: 20060308
  3. RIFAMPICIN [Suspect]
     Route: 042
     Dates: start: 20060228, end: 20060308
  4. ALBUMIN (HUMAN) [Concomitant]
     Route: 065
  5. ALBUMIN (HUMAN) [Concomitant]
     Indication: HYPOALBUMINAEMIA
     Route: 065
  6. MORPHINE [Concomitant]
     Indication: PAIN
     Route: 065
  7. ENOXAPARIN SODIUM [Concomitant]
     Route: 065
  8. FRUSEMIDE [Concomitant]
     Route: 065
  9. FOLIC ACID [Concomitant]
     Indication: ANAEMIA
     Route: 065
  10. RANITIDINE [Concomitant]
     Indication: GASTROINTESTINAL DISORDER THERAPY
     Route: 065
  11. SODIUM FERRIGLUCONATE [Concomitant]
     Route: 065
  12. HUMAN INSULIN [Concomitant]
     Route: 065

REACTIONS (2)
  - DEATH [None]
  - HEPATITIS CHOLESTATIC [None]
